FAERS Safety Report 25064195 (Version 1)
Quarter: 2025Q1

REPORT INFORMATION
  Report Type: Spontaneous
  Country: US (occurrence: US)
  Receive Date: 20250311
  Receipt Date: 20250311
  Transmission Date: 20250409
  Serious: No
  Sender: SLATE RUN
  Company Number: US-SLATERUN-2025SRSPO00019

PATIENT
  Age: 89 Year
  Sex: Female

DRUGS (1)
  1. TROSPIUM CHLORIDE [Suspect]
     Active Substance: TROSPIUM CHLORIDE
     Indication: Hypertonic bladder
     Route: 065
     Dates: start: 202501, end: 202502

REACTIONS (2)
  - Adverse reaction [Unknown]
  - Visual impairment [Recovering/Resolving]

NARRATIVE: CASE EVENT DATE: 20250101
